FAERS Safety Report 7865665-0 (Version None)
Quarter: 2011Q4

REPORT INFORMATION
  Report Type: 
  Country: None (occurrence: None)
  Receive Date: 20111028
  Receipt Date: 20110203
  Transmission Date: 20120403
  Serious: No
  Sender: FDA-Public Use
  Company Number: US-GLAXOSMITHKLINE-A0911698A

PATIENT
  Age: 57 Year
  Sex: Female

DRUGS (8)
  1. PREDNISONE [Concomitant]
  2. ASPIRIN [Concomitant]
  3. ADVAIR DISKUS 100/50 [Suspect]
     Indication: CHRONIC OBSTRUCTIVE PULMONARY DISEASE
     Route: 055
     Dates: start: 20100701
  4. PEPCID [Concomitant]
  5. NORVASC [Concomitant]
  6. ZYRTEC [Concomitant]
  7. KLONOPIN [Concomitant]
  8. COUGH MEDICINE [Concomitant]

REACTIONS (1)
  - THROAT IRRITATION [None]
